FAERS Safety Report 5818666-8 (Version None)
Quarter: 2008Q3

REPORT INFORMATION
  Report Type: 
  Country: None (occurrence: None)
  Receive Date: 20080721
  Receipt Date: 20080721
  Transmission Date: 20090109
  Serious: No
  Sender: FDA-Public Use
  Company Number: None

PATIENT
  Age: 65 Year
  Sex: Male
  Weight: 104.3273 kg

DRUGS (5)
  1. VANCOMYCIN HCL [Suspect]
     Indication: DEVICE RELATED INFECTION
     Dosage: 1.5GM IV EVERY 12 HOURS IV
     Route: 042
     Dates: start: 20080621, end: 20080717
  2. VANCOMYCIN HCL [Suspect]
     Dosage: 1.5 GM IV EVERY 12 HOURS IV
     Route: 042
     Dates: start: 20080621, end: 20080717
  3. VANCOMYCIN [Suspect]
     Dosage: 1.5GM EVERY 12 HRS IV
     Route: 042
     Dates: start: 20080621, end: 20080717
  4. VANCOMYCIN [Suspect]
     Dosage: 1.5 GM EVERY 12 HRS IV
     Route: 042
     Dates: start: 20080621, end: 20080717
  5. VANCOMYCIN [Suspect]

REACTIONS (1)
  - NEUTROPENIA [None]
